FAERS Safety Report 10502530 (Version 1)
Quarter: 2014Q4

REPORT INFORMATION
  Report Type: Spontaneous
  Country: AT (occurrence: AT)
  Receive Date: 20141007
  Receipt Date: 20141007
  Transmission Date: 20150528
  Serious: Yes (Other)
  Sender: FDA-Public Use
  Company Number: AT-BAXTER-2014BAX058397

PATIENT
  Age: 50 Year
  Sex: Male

DRUGS (10)
  1. CISPLATIN. [Suspect]
     Active Substance: CISPLATIN
     Indication: PANCREATIC CARCINOMA
  2. ENDOXAN ^BAXTER^ 100 MG - TROCKENSTECHAMPULLE [Suspect]
     Active Substance: CYCLOPHOSPHAMIDE
     Indication: NEUROENDOCRINE CARCINOMA
     Route: 065
  3. ETOPOSIDE. [Suspect]
     Active Substance: ETOPOSIDE
     Indication: NEUROENDOCRINE CARCINOMA
     Route: 065
  4. VINCRISTIN [Suspect]
     Active Substance: VINCRISTINE
     Indication: PANCREATIC CARCINOMA
  5. CISPLATIN. [Suspect]
     Active Substance: CISPLATIN
     Indication: NEUROENDOCRINE CARCINOMA
     Route: 065
  6. ETOPOSIDE. [Suspect]
     Active Substance: ETOPOSIDE
     Indication: PANCREATIC CARCINOMA
  7. DOXORUBICIN [Suspect]
     Active Substance: DOXORUBICIN
     Indication: NEUROENDOCRINE CARCINOMA
     Route: 065
  8. ENDOXAN ^BAXTER^ 100 MG - TROCKENSTECHAMPULLE [Suspect]
     Active Substance: CYCLOPHOSPHAMIDE
     Indication: PANCREATIC CARCINOMA
  9. DOXORUBICIN [Suspect]
     Active Substance: DOXORUBICIN
     Indication: PANCREATIC CARCINOMA
  10. VINCRISTIN [Suspect]
     Active Substance: VINCRISTINE
     Indication: NEUROENDOCRINE CARCINOMA
     Route: 065

REACTIONS (1)
  - Disease progression [Not Recovered/Not Resolved]
